FAERS Safety Report 19731498 (Version 1)
Quarter: 2021Q3

REPORT INFORMATION
  Report Type: Spontaneous
  Country: US (occurrence: US)
  Receive Date: 20210819
  Receipt Date: 20210819
  Transmission Date: 20211014
  Serious: No
  Sender: FDA-Public Use
  Company Number: None

PATIENT
  Age: 59 Year
  Sex: Female

DRUGS (2)
  1. ENBREL [Suspect]
     Active Substance: ETANERCEPT
     Dosage: OTHER
     Route: 058
     Dates: start: 19980801
  2. PFIZER?BIONTECH COVID?19 VACCINE [Concomitant]
     Active Substance: TOZINAMERAN

REACTIONS (7)
  - Oropharyngeal pain [None]
  - Dizziness [None]
  - Pyrexia [None]
  - Chest discomfort [None]
  - Ear pain [None]
  - Sinus congestion [None]
  - Cough [None]

NARRATIVE: CASE EVENT DATE: 20210816
